FAERS Safety Report 6343605-3 (Version None)
Quarter: 2009Q3

REPORT INFORMATION
  Report Type: 
  Country: None (occurrence: None)
  Receive Date: 20090908
  Receipt Date: 20090805
  Transmission Date: 20100115
  Serious: No
  Sender: FDA-Public Use
  Company Number: US-BAYER-200930197NA

PATIENT
  Age: 49 Year
  Sex: Male

DRUGS (4)
  1. ULTRAVIST 370 [Suspect]
     Indication: COMPUTERISED TOMOGRAM ABDOMEN
     Dosage: TOTAL DAILY DOSE: 80 ML  UNIT DOSE: 500 ML
     Route: 042
     Dates: start: 20090805, end: 20090805
  2. ASPIRIN [Concomitant]
  3. PREVACID [Concomitant]
  4. BARIUM [Concomitant]
     Dates: start: 20090805, end: 20090805

REACTIONS (2)
  - PRURITUS [None]
  - URTICARIA [None]
